FAERS Safety Report 5429519-1 (Version None)
Quarter: 2007Q3

REPORT INFORMATION
  Report Type: 
  Country: None (occurrence: None)
  Receive Date: 20070829
  Receipt Date: 20070820
  Transmission Date: 20080115
  Serious: Yes (Hospitalization)
  Sender: FDA-Public Use
  Company Number: DE-JNJFOC-20070800575

PATIENT
  Age: 84 Year
  Sex: Female

DRUGS (8)
  1. TAVANIC [Suspect]
     Indication: PYELONEPHRITIS
     Route: 048
     Dates: start: 20070621, end: 20070625
  2. TAVANIC [Suspect]
     Indication: URINARY TRACT INFECTION
     Route: 048
     Dates: start: 20070621, end: 20070625
  3. PHLEBODRIL [Concomitant]
     Route: 048
  4. ACTOS [Concomitant]
     Indication: DIABETES MELLITUS
     Route: 048
  5. EUTHYROX [Concomitant]
     Indication: HYPOTHYROIDISM
     Route: 048
  6. ARICEPT [Concomitant]
     Indication: DEMENTIA
     Route: 048
  7. PANTOPRAZOLE SODIUM [Concomitant]
     Indication: GASTRITIS
     Route: 048
  8. SODIUM CHLORIDE [Concomitant]
     Indication: DEHYDRATION
     Route: 042

REACTIONS (1)
  - EXTREMITY NECROSIS [None]
